FAERS Safety Report 5022944-2 (Version None)
Quarter: 2006Q2

REPORT INFORMATION
  Report Type: 
  Country: None (occurrence: None)
  Receive Date: 20060426
  Receipt Date: 20060316
  Transmission Date: 20061013
  Serious: Yes (Other)
  Sender: FDA-Public Use
  Company Number: 2006038001

PATIENT
  Age: 62 Year
  Sex: Male
  Weight: 107.9561 kg

DRUGS (5)
  1. LYRICA [Suspect]
     Indication: POST HERPETIC NEURALGIA
     Dosage: 150 MG (50 MG, 3 IN 1 D), ORAL
     Route: 048
     Dates: start: 20051207
  2. ATIVAN [Suspect]
     Indication: SLEEP DISORDER
  3. HYDROCODONE BITARTRATE [Concomitant]
  4. ATENOLOL [Concomitant]
  5. MAVIK [Concomitant]

REACTIONS (6)
  - DRUG INEFFECTIVE [None]
  - DRUG INTERACTION [None]
  - DRY MOUTH [None]
  - HYPERSOMNIA [None]
  - NEURALGIA [None]
  - PLATELET COUNT DECREASED [None]
